FAERS Safety Report 5902090-3 (Version None)
Quarter: 2008Q3

REPORT INFORMATION
  Report Type: 
  Country: None (occurrence: None)
  Receive Date: 20080919
  Receipt Date: 20080807
  Transmission Date: 20090109
  Serious: No
  Sender: FDA-Public Use
  Company Number: US-WYE-H05463308

PATIENT
  Age: 66 Year
  Sex: Male

DRUGS (3)
  1. PRISTIQ [Suspect]
     Indication: DEPRESSION
     Dosage: 50 MG 1X PER 1 DAY, ORAL
     Route: 048
     Dates: start: 20080701
  2. FLOMAX [Concomitant]
  3. HYZAAR [Concomitant]

REACTIONS (2)
  - ABNORMAL DREAMS [None]
  - FATIGUE [None]
